FAERS Safety Report 21280785 (Version 1)
Quarter: 2022Q3

REPORT INFORMATION
  Report Type: Spontaneous
  Country: US (occurrence: US)
  Receive Date: 20220901
  Receipt Date: 20220901
  Transmission Date: 20221027
  Serious: Yes (Other)
  Sender: FDA-Public Use
  Company Number: US-PFIZER INC-PV202200052561

PATIENT
  Age: 64 Year
  Sex: Female
  Weight: 71.21 kg

DRUGS (1)
  1. ATORVASTATIN CALCIUM [Suspect]
     Active Substance: ATORVASTATIN CALCIUM
     Indication: Blood cholesterol increased
     Dosage: 20 MG, 1X/DAY
     Dates: start: 201206, end: 201207

REACTIONS (5)
  - Seizure [Unknown]
  - Rectal haemorrhage [Recovering/Resolving]
  - Dyspepsia [Unknown]
  - Constipation [Recovering/Resolving]
  - Anal fissure [Recovering/Resolving]

NARRATIVE: CASE EVENT DATE: 20120601
